FAERS Safety Report 20995637 (Version 1)
Quarter: 2022Q2

REPORT INFORMATION
  Report Type: Spontaneous
  Country: US (occurrence: None)
  Receive Date: 20220623
  Receipt Date: 20220623
  Transmission Date: 20220721
  Serious: Yes (Hospitalization, Other)
  Sender: FDA-Public Use
  Company Number: US-MICRO LABS LIMITED-ML2022-03073

PATIENT
  Age: 9 Year
  Sex: Female

DRUGS (8)
  1. LEVETIRACETAM [Suspect]
     Active Substance: LEVETIRACETAM
     Indication: Seizure
  2. PHENOBARBITAL [Suspect]
     Active Substance: PHENOBARBITAL
     Indication: Seizure
  3. SODIUM CHLORIDE [Concomitant]
     Active Substance: SODIUM CHLORIDE
  4. AMPICILLIN [Concomitant]
     Active Substance: AMPICILLIN
  5. GENTAMICIN [Concomitant]
     Active Substance: GENTAMICIN
  6. FENTANYL [Concomitant]
     Active Substance: FENTANYL
  7. MIDAZOLAM [Concomitant]
     Active Substance: MIDAZOLAM
  8. ACYCLOVIR [Concomitant]
     Active Substance: ACYCLOVIR

REACTIONS (1)
  - Epilepsy [Recovered/Resolved]
